FAERS Safety Report 17877455 (Version 8)
Quarter: 2020Q4

REPORT INFORMATION
  Report Type: Spontaneous
  Country: BE (occurrence: BE)
  Receive Date: 20200609
  Receipt Date: 20201202
  Transmission Date: 20210113
  Serious: Yes (Hospitalization)
  Sender: FDA-Public Use
  Company Number: BE-CELGENEUS-BEL-20200506512

PATIENT
  Age: 82 Year
  Sex: Female
  Weight: 55.4 kg

DRUGS (54)
  1. ZOLPIDEM [Concomitant]
     Active Substance: ZOLPIDEM TARTRATE
     Indication: INSOMNIA
     Dosage: 10 MILLIGRAM
     Route: 048
     Dates: start: 2013
  2. TRADONAL ODIS [Concomitant]
     Indication: BURSITIS
     Dosage: 50 MILLIGRAM
     Route: 048
     Dates: start: 20180819
  3. TEVAGRASTIM [Concomitant]
     Active Substance: FILGRASTIM
     Dosage: 30 MIU
     Route: 058
     Dates: start: 20181001, end: 20181005
  4. TEVAGRASTIM [Concomitant]
     Active Substance: FILGRASTIM
     Dosage: 48 MIU
     Route: 058
     Dates: start: 20190221, end: 20190417
  5. TEVAGRASTIM [Concomitant]
     Active Substance: FILGRASTIM
     Dosage: 48 MIU
     Route: 058
     Dates: start: 20190429, end: 20190512
  6. FOLAVIT [Concomitant]
     Active Substance: FOLIC ACID
     Indication: FOLATE DEFICIENCY
     Dosage: 4 MILLIGRAM
     Route: 048
     Dates: start: 20200213
  7. NORMAL SALINE [Concomitant]
     Active Substance: SODIUM CHLORIDE
     Dosage: 9 LITERS
     Route: 048
     Dates: start: 20180425, end: 20180429
  8. XOLAIR [Concomitant]
     Active Substance: OMALIZUMAB
     Dosage: 75 MILLIGRAM
     Route: 030
     Dates: start: 20180522
  9. OXYCONTIN [Concomitant]
     Active Substance: OXYCODONE HYDROCHLORIDE
     Indication: MYALGIA
     Dosage: 20 MILLIGRAM
     Route: 048
     Dates: start: 20200504, end: 20200603
  10. LIPITOR [Concomitant]
     Active Substance: ATORVASTATIN CALCIUM
     Dosage: 40 MILLIGRAM
     Route: 048
     Dates: start: 20181114
  11. TEVAGRASTIM [Concomitant]
     Active Substance: FILGRASTIM
     Dosage: 48 MIU
     Route: 058
     Dates: start: 20190722, end: 20190804
  12. TEVAGRASTIM [Concomitant]
     Active Substance: FILGRASTIM
     Dosage: 48 MIU
     Route: 058
     Dates: start: 20191017, end: 20200209
  13. ALLOPURINOL. [Concomitant]
     Active Substance: ALLOPURINOL
     Indication: PROPHYLAXIS
     Dosage: 300 MILLIGRAM
     Route: 048
     Dates: start: 20180418, end: 20180516
  14. XOLAIR [Concomitant]
     Active Substance: OMALIZUMAB
     Indication: URTICARIA CHRONIC
     Dosage: 75 MILLIGRAM
     Route: 030
     Dates: start: 2017, end: 20180521
  15. ULTRA-K [Concomitant]
     Indication: HYPOKALAEMIA
     Dosage: 15 MILLILITER
     Route: 048
     Dates: start: 20200504, end: 20200531
  16. ACYCLOVIR. [Concomitant]
     Active Substance: ACYCLOVIR
     Indication: ANTIVIRAL PROPHYLAXIS
     Dosage: 800 MILLIGRAM
     Route: 048
     Dates: start: 20180412
  17. LIPITOR [Concomitant]
     Active Substance: ATORVASTATIN CALCIUM
     Indication: HYPERCHOLESTEROLAEMIA
     Dosage: 10 MILLIGRAM
     Route: 048
     Dates: start: 1990, end: 20181113
  18. TRADONAL ODIS [Concomitant]
     Dosage: 100 MILLIGRAM
     Route: 048
     Dates: start: 20180827
  19. TEVAGRASTIM [Concomitant]
     Active Substance: FILGRASTIM
     Dosage: 48 MIU
     Route: 058
     Dates: start: 20181114, end: 20181125
  20. TEVAGRASTIM [Concomitant]
     Active Substance: FILGRASTIM
     Dosage: 48 MIU
     Route: 058
     Dates: start: 20190418, end: 20190428
  21. TEVAGRASTIM [Concomitant]
     Active Substance: FILGRASTIM
     Dosage: 48 MIU
     Route: 058
     Dates: start: 20190624, end: 20190707
  22. TEVAGRASTIM [Concomitant]
     Active Substance: FILGRASTIM
     Dosage: 48 MIU
     Route: 058
     Dates: start: 20200210, end: 20200216
  23. AZACITIDINE. [Suspect]
     Active Substance: AZACITIDINE
     Indication: ACUTE MYELOID LEUKAEMIA
     Dosage: 75 MILLIGRAM/SQ. METER
     Route: 058
     Dates: start: 20180425, end: 20200428
  24. VENETOCLAX. [Concomitant]
     Active Substance: VENETOCLAX
     Indication: ACUTE MYELOID LEUKAEMIA
     Route: 065
  25. ZOFRAN [Concomitant]
     Active Substance: ONDANSETRON HYDROCHLORIDE
     Indication: PROPHYLAXIS OF NAUSEA AND VOMITING
     Dosage: 8 MILLIGRAM
     Route: 048
     Dates: start: 20180425
  26. OENOTHERA OIL [Concomitant]
     Indication: DRY SKIN
     Dosage: 2 DOSAGE FORMS
     Route: 061
     Dates: start: 20180523
  27. TEVAGRASTIM [Concomitant]
     Active Substance: FILGRASTIM
     Dosage: 48 MIU
     Route: 058
     Dates: start: 20181017, end: 20181026
  28. TEVAGRASTIM [Concomitant]
     Active Substance: FILGRASTIM
     Dosage: 48 MIU
     Route: 058
     Dates: start: 20190805, end: 20191013
  29. TEVAGRASTIM [Concomitant]
     Active Substance: FILGRASTIM
     Dosage: 48 MIU
     Route: 058
     Dates: start: 20191014, end: 20191016
  30. TEVAGRASTIM [Concomitant]
     Active Substance: FILGRASTIM
     Dosage: 48 MIU
     Route: 058
     Dates: start: 20200217, end: 20200413
  31. TEVAGRASTIM [Concomitant]
     Active Substance: FILGRASTIM
     Dosage: 30 MIU
     Route: 058
     Dates: start: 20200513, end: 20200515
  32. AZACITIDINE. [Suspect]
     Active Substance: AZACITIDINE
     Dosage: 75 MILLIGRAM/SQ. METER
     Route: 058
     Dates: start: 20200615
  33. MOVICOL [Concomitant]
     Active Substance: POLYETHYLENE GLYCOL 3350\POTASSIUM CHLORIDE\SODIUM BICARBONATE\SODIUM CHLORIDE
     Indication: CONSTIPATION
     Dosage: 1 SACHET
     Route: 048
     Dates: start: 20180502
  34. TEVAGRASTIM [Concomitant]
     Active Substance: FILGRASTIM
     Dosage: 30 MIU
     Route: 058
     Dates: start: 20180523, end: 20180604
  35. TEVAGRASTIM [Concomitant]
     Active Substance: FILGRASTIM
     Dosage: 48 MIU
     Route: 058
     Dates: start: 20181126, end: 20181223
  36. TEVAGRASTIM [Concomitant]
     Active Substance: FILGRASTIM
     Dosage: 48 MIU
     Route: 058
     Dates: start: 20181224, end: 20190107
  37. TEVAGRASTIM [Concomitant]
     Active Substance: FILGRASTIM
     Dosage: 48 MIU
     Route: 058
     Dates: start: 20190204, end: 20190217
  38. TEVAGRASTIM [Concomitant]
     Active Substance: FILGRASTIM
     Dosage: 48 MIU
     Route: 058
     Dates: start: 20190513, end: 20190604
  39. TEVAGRASTIM [Concomitant]
     Active Substance: FILGRASTIM
     Dosage: 48 MIU
     Route: 058
     Dates: start: 20200414, end: 20200419
  40. TEVAGRASTIM [Concomitant]
     Active Substance: FILGRASTIM
     Dosage: 48 MIU
     Route: 058
     Dates: start: 20190108, end: 20190203
  41. TEVAGRASTIM [Concomitant]
     Active Substance: FILGRASTIM
     Dosage: 48 MIU
     Route: 058
     Dates: start: 20200420, end: 20200512
  42. TEVAGRASTIM [Concomitant]
     Active Substance: FILGRASTIM
     Dosage: 48 MIU
     Route: 058
     Dates: start: 20200525
  43. RASBURICASE [Concomitant]
     Active Substance: RASBURICASE
     Indication: PROPHYLAXIS
     Dosage: 12 MILLIGRAM
     Route: 041
     Dates: start: 20180425, end: 20180425
  44. OXYNORM [Concomitant]
     Active Substance: OXYCODONE HYDROCHLORIDE
     Indication: MYALGIA
     Route: 048
     Dates: start: 20200422, end: 20200603
  45. ARANESP [Concomitant]
     Active Substance: DARBEPOETIN ALFA
     Indication: ANAEMIA
     Dosage: 23.8095 MICROGRAM
     Route: 058
     Dates: start: 20200422
  46. BACTRIM [Concomitant]
     Active Substance: SULFAMETHOXAZOLE\TRIMETHOPRIM
     Indication: ANTIFUNGAL PROPHYLAXIS
     Dosage: 800/160 MG
     Route: 048
     Dates: start: 20180608
  47. TEVAGRASTIM [Concomitant]
     Active Substance: FILGRASTIM
     Dosage: 48 MIU
     Route: 058
     Dates: start: 20190708, end: 20190721
  48. TEVAGRASTIM [Concomitant]
     Active Substance: FILGRASTIM
     Dosage: 48 MIU
     Route: 058
     Dates: start: 20200518, end: 20200524
  49. NORMAL SALINE [Concomitant]
     Active Substance: SODIUM CHLORIDE
     Indication: PROPHYLAXIS
     Dosage: 9 LITERS
     Route: 041
     Dates: start: 20180425, end: 20180429
  50. TRADONAL RETARD [Concomitant]
     Active Substance: TRAMADOL HYDROCHLORIDE
     Indication: BURSITIS
     Dosage: 100 MILLIGRAM
     Route: 048
     Dates: start: 20180827
  51. TEVAGRASTIM [Concomitant]
     Active Substance: FILGRASTIM
     Indication: NEUTROPENIA
     Dosage: 48 MIU
     Route: 058
     Dates: start: 20200217
  52. TEVAGRASTIM [Concomitant]
     Active Substance: FILGRASTIM
     Dosage: 30 MIU
     Route: 058
     Dates: start: 20180705, end: 20180709
  53. TEVAGRASTIM [Concomitant]
     Active Substance: FILGRASTIM
     Dosage: 48 MIU
     Route: 058
     Dates: start: 20190605, end: 20190616
  54. TEVAGRASTIM [Concomitant]
     Active Substance: FILGRASTIM
     Dosage: 48 MIU
     Route: 058
     Dates: start: 20190617, end: 20190623

REACTIONS (2)
  - Delirium [Recovered/Resolved]
  - General physical health deterioration [Not Recovered/Not Resolved]

NARRATIVE: CASE EVENT DATE: 20200512
